FAERS Safety Report 18920767 (Version 1)
Quarter: 2021Q1

REPORT INFORMATION
  Report Type: Spontaneous
  Country: US (occurrence: US)
  Receive Date: 20210222
  Receipt Date: 20210222
  Transmission Date: 20210420
  Serious: No
  Sender: FDA-Public Use
  Company Number: US-TEVA-2021-US-1877465

PATIENT
  Sex: Female

DRUGS (3)
  1. AUSTEDO [Suspect]
     Active Substance: DEUTETRABENAZINE
     Indication: DYSKINESIA
  2. AUSTEDO [Suspect]
     Active Substance: DEUTETRABENAZINE
     Indication: TREMOR
  3. AUSTEDO [Suspect]
     Active Substance: DEUTETRABENAZINE
     Indication: TARDIVE DYSKINESIA
     Dates: start: 20201022

REACTIONS (6)
  - Jaw disorder [Unknown]
  - Trismus [Unknown]
  - Temporomandibular joint syndrome [Unknown]
  - Dyskinesia [Unknown]
  - Therapeutic product effect decreased [Unknown]
  - Chondropathy [Unknown]

NARRATIVE: CASE EVENT DATE: 2020
